FAERS Safety Report 23481880 (Version 2)
Quarter: 2024Q1

REPORT INFORMATION
  Report Type: Spontaneous
  Country: CA (occurrence: CA)
  Receive Date: 20240205
  Receipt Date: 20240325
  Transmission Date: 20240410
  Serious: Yes (Other)
  Sender: FDA-Public Use
  Company Number: CA-SUN PHARMACEUTICAL INDUSTRIES LTD-2024R1-429797

PATIENT
  Age: 6 Decade
  Sex: Male

DRUGS (1)
  1. SUNITINIB [Suspect]
     Active Substance: SUNITINIB
     Indication: Renal cancer
     Dosage: UNK
     Route: 065

REACTIONS (2)
  - Nephrotic syndrome [Recovered/Resolved]
  - Thrombotic microangiopathy [Recovered/Resolved]
